FAERS Safety Report 5164581-5 (Version None)
Quarter: 2006Q4

REPORT INFORMATION
  Report Type: 
  Country: None (occurrence: None)
  Receive Date: 20061205
  Receipt Date: 20061124
  Transmission Date: 20070319
  Serious: Yes (Other)
  Sender: FDA-Public Use
  Company Number: SEWYE648524NOV06

PATIENT
  Sex: Female

DRUGS (7)
  1. ENBREL [Suspect]
     Indication: RHEUMATOID ARTHRITIS
     Route: 065
     Dates: start: 20000401, end: 20060501
  2. METHOTREXATE [Suspect]
     Indication: RHEUMATOID ARTHRITIS
     Route: 048
     Dates: start: 20050401
  3. LASIX [Concomitant]
     Dosage: 30 MG EVERY
  4. CALCICHEW-D3 [Concomitant]
  5. VOLTAREN [Concomitant]
     Dosage: 50 MG EVERY
  6. PREDNISOLON COMP. [Concomitant]
     Dosage: 2.5 MG EVERY
  7. TENORMIN [Concomitant]
     Dosage: 50 MG EVERY

REACTIONS (3)
  - DRUG INEFFECTIVE [None]
  - LIVER FUNCTION TEST ABNORMAL [None]
  - UTERINE CANCER [None]
